FAERS Safety Report 6443204-9 (Version None)
Quarter: 2009Q4

REPORT INFORMATION
  Report Type: 
  Country: None (occurrence: None)
  Receive Date: 20091117
  Receipt Date: 20091110
  Transmission Date: 20100525
  Serious: Yes (Death, Other)
  Sender: FDA-Public Use
  Company Number: US-ELI_LILLY_AND_COMPANY-US200901005495

PATIENT
  Sex: Male

DRUGS (17)
  1. HUMALOG [Suspect]
     Dosage: UNK, UNK
  2. HUMULIN N [Suspect]
     Dosage: UNK, UNK
  3. ALLOPURINOL [Concomitant]
     Dosage: 100 MG, UNK
  4. AMITRIPTYLINE HCL [Concomitant]
     Dosage: 75 UNK, UNK
  5. ATENOLOL [Concomitant]
     Dosage: 100 UNK, UNK
  6. DILTIAZEM [Concomitant]
     Dosage: 120 MG, UNK
  7. FUROSEMIDE [Concomitant]
     Dosage: 80 MG, UNK
  8. LIPITOR [Concomitant]
     Dosage: 60 MG, UNK
  9. LOMOTIL [Concomitant]
     Dosage: 2.5 MG, UNK
  10. NEURONTIN [Concomitant]
     Dosage: 400 MG, UNK
  11. PREVACID [Concomitant]
     Dosage: 30 MG, UNK
  12. TRIAMCINOLONE [Concomitant]
     Dosage: 0.5 %, UNK
     Route: 061
  13. ZEMPLAR [Concomitant]
     Dosage: 2 MG, UNK
  14. IMODIUM [Concomitant]
  15. METAMUCIL [Concomitant]
  16. CALTRATE + D [Concomitant]
  17. TUMS [Concomitant]

REACTIONS (5)
  - CARDIAC ARREST [None]
  - CEREBROVASCULAR ACCIDENT [None]
  - RENAL DISORDER [None]
  - RENAL FAILURE ACUTE [None]
  - RESPIRATORY FAILURE [None]
